FAERS Safety Report 4710698-6 (Version None)
Quarter: 2005Q3

REPORT INFORMATION
  Report Type: 
  Country: None (occurrence: None)
  Receive Date: 20050707
  Receipt Date: 20050621
  Transmission Date: 20060218
  Serious: Yes (Death)
  Sender: FDA-Public Use
  Company Number: 11685

PATIENT

DRUGS (6)
  1. CISPLATIN [Suspect]
     Indication: NON-SMALL CELL LUNG CANCER
     Dosage: 5MG/M2 OTH
     Route: 048
  2. PACLITAXEL [Suspect]
     Indication: NON-SMALL CELL LUNG CANCER
     Dosage: 200MG/M2 OTH
  3. CARBOPLATIN [Suspect]
     Indication: NON-SMALL CELL LUNG CANCER
  4. DEXAMETHASONE [Concomitant]
  5. ORPHENADRINE [Concomitant]
  6. RANITIDINE [Concomitant]

REACTIONS (4)
  - BONE MARROW DEPRESSION [None]
  - CARDIOTOXICITY [None]
  - PULMONARY OEDEMA [None]
  - PULMONARY TOXICITY [None]
